FAERS Safety Report 5664640-4 (Version None)
Quarter: 2008Q1

REPORT INFORMATION
  Report Type: 
  Country: None (occurrence: None)
  Receive Date: 20080314
  Receipt Date: 20080304
  Transmission Date: 20080703
  Serious: Yes (Hospitalization, Other)
  Sender: FDA-Public Use
  Company Number: US-MERCK-0706USA00888

PATIENT
  Age: 36 Year
  Sex: Female

DRUGS (11)
  1. FOSAMAX [Suspect]
     Indication: OSTEOPOROSIS
     Route: 048
     Dates: start: 19980101, end: 20060101
  2. PREDNISONE [Concomitant]
     Route: 065
     Dates: start: 19930101
  3. NEURONTIN [Concomitant]
     Route: 065
     Dates: start: 20000101
  4. PLAVIX [Concomitant]
     Route: 065
  5. ASPIRIN [Concomitant]
     Route: 065
  6. ADVAIR DISKUS 100/50 [Concomitant]
     Route: 065
  7. ALBUTEROL [Concomitant]
     Route: 065
  8. MS CONTIN [Concomitant]
     Route: 065
  9. TOPAMAX [Concomitant]
     Route: 065
     Dates: end: 20040101
  10. METHOTREXATE [Concomitant]
     Indication: SYSTEMIC LUPUS ERYTHEMATOSUS
     Route: 065
     Dates: end: 20060401
  11. METHOTREXATE [Concomitant]
     Route: 065
     Dates: start: 20060601

REACTIONS (62)
  - ABDOMINAL DISTENSION [None]
  - ABDOMINAL PAIN [None]
  - ADDISON'S DISEASE [None]
  - ANTIPHOSPHOLIPID SYNDROME [None]
  - ANXIETY [None]
  - BASAL GANGLION DEGENERATION [None]
  - BENIGN HEPATIC NEOPLASM [None]
  - BENIGN NEOPLASM [None]
  - BLOOD POTASSIUM DECREASED [None]
  - BONE DENSITY DECREASED [None]
  - BRONCHITIS [None]
  - BURNING SENSATION [None]
  - CEREBELLAR ATROPHY [None]
  - CEREBELLAR INFARCTION [None]
  - CEREBRAL CALCIFICATION [None]
  - CEREBROVASCULAR ACCIDENT [None]
  - COMPLEX PARTIAL SEIZURES [None]
  - CONSTIPATION [None]
  - DEHYDRATION [None]
  - DENTAL CARIES [None]
  - DIARRHOEA [None]
  - DUODENITIS [None]
  - DYSAESTHESIA [None]
  - ENCEPHALITIS [None]
  - FACE INJURY [None]
  - FALL [None]
  - FOCAL NODULAR HYPERPLASIA [None]
  - GASTRIC DISORDER [None]
  - GASTROENTERITIS [None]
  - GASTROOESOPHAGEAL REFLUX DISEASE [None]
  - GINGIVAL ABSCESS [None]
  - GINGIVAL BLEEDING [None]
  - GINGIVAL DISORDER [None]
  - GINGIVAL INFECTION [None]
  - GINGIVAL PAIN [None]
  - HEPATITIS [None]
  - HIATUS HERNIA [None]
  - HYPOAESTHESIA [None]
  - HYPOVOLAEMIA [None]
  - IMPAIRED HEALING [None]
  - INFECTION [None]
  - INJURY [None]
  - JOINT RANGE OF MOTION DECREASED [None]
  - LEUKOPLAKIA ORAL [None]
  - NAUSEA [None]
  - NERVOUS SYSTEM DISORDER [None]
  - OSTEONECROSIS [None]
  - PANCREATITIS [None]
  - PARAESTHESIA [None]
  - PERIODONTAL DISEASE [None]
  - PHARYNGITIS [None]
  - RATHKE'S CLEFT CYST [None]
  - RECTAL HAEMORRHAGE [None]
  - RENAL CYST [None]
  - SENSATION OF HEAVINESS [None]
  - SINUSITIS [None]
  - SYSTEMIC LUPUS ERYTHEMATOSUS [None]
  - TEMPOROMANDIBULAR JOINT SYNDROME [None]
  - TRANSIENT ISCHAEMIC ATTACK [None]
  - URINARY INCONTINENCE [None]
  - VASCULAR HEADACHE [None]
  - VASCULITIS [None]
